FAERS Safety Report 9683931 (Version 1)
Quarter: 2013Q4

REPORT INFORMATION
  Report Type: Spontaneous
  Country: US (occurrence: US)
  Receive Date: 20131112
  Receipt Date: 20131112
  Transmission Date: 20140711
  Serious: No
  Sender: FDA-Public Use
  Company Number: US-MALLINCKRODT-T201304824

PATIENT
  Age: 56 Year
  Sex: Female

DRUGS (4)
  1. FENTANYL TRANSDERMAL SYSTEM [Suspect]
     Indication: BACK PAIN
     Dosage: 100 UG/HR, Q 72 HRS
     Route: 062
     Dates: start: 201310
  2. PERCOCET                           /00446701/ [Concomitant]
     Indication: BREAKTHROUGH PAIN
     Dosage: 10/325 MG, QID
     Route: 048
  3. VALIUM [Concomitant]
     Indication: ANXIETY
     Dosage: 5 MG, TID
     Route: 048
  4. AMBIEN [Concomitant]
     Indication: INSOMNIA
     Dosage: ONE @ HS
     Route: 048

REACTIONS (4)
  - Incorrect drug administration duration [Recovered/Resolved]
  - Pruritus [Recovered/Resolved]
  - Anxiety [Recovered/Resolved]
  - Drug ineffective [Recovered/Resolved]
